FAERS Safety Report 6628307-8 (Version None)
Quarter: 2010Q1

REPORT INFORMATION
  Report Type: 
  Country: None (occurrence: None)
  Receive Date: 20100311
  Receipt Date: 20100217
  Transmission Date: 20100710
  Serious: Yes (Death, Hospitalization)
  Sender: FDA-Public Use
  Company Number: US-ROCHE-677410

PATIENT
  Sex: Female
  Weight: 63.5 kg

DRUGS (5)
  1. CAPECITABINE [Suspect]
     Dosage: ROUTE: BY MOUTH, TAKEN FOR 14 DAYS, 1 CYCLE: 30 OCT TO 12 NOV, 2ND CYCLE:20 NOV TO 01 DEC 2009
     Route: 048
     Dates: start: 20091030, end: 20091201
  2. PERCOCET [Concomitant]
  3. DURAGESIC-100 [Concomitant]
  4. ATIVAN [Concomitant]
  5. PRILOSEC [Concomitant]

REACTIONS (1)
  - MALIGNANT NEOPLASM PROGRESSION [None]
